FAERS Safety Report 5793792-0 (Version None)
Quarter: 2008Q2

REPORT INFORMATION
  Report Type: 
  Country: None (occurrence: None)
  Receive Date: 20080627
  Receipt Date: 20080616
  Transmission Date: 20081010
  Serious: Yes (Other)
  Sender: FDA-Public Use
  Company Number: DE-BAXTER-2008BH005730

PATIENT
  Age: 56 Year
  Sex: Male
  Weight: 95 kg

DRUGS (18)
  1. EXTRANEAL [Suspect]
     Indication: PERITONEAL DIALYSIS
     Route: 033
     Dates: start: 20080425
  2. BLOPRESS [Concomitant]
  3. AMLODIPINE [Concomitant]
  4. CARVEDILOL [Concomitant]
  5. CYNT ^BEIERSDORF^ [Concomitant]
  6. TORSEMIDE [Concomitant]
  7. EINSALPHA [Concomitant]
  8. RAMIPRIL [Concomitant]
  9. RENAGEL [Concomitant]
  10. CALCIUM ACETATE [Concomitant]
  11. ESIDRIX [Concomitant]
  12. NEPRESOL [Concomitant]
  13. NIFEDIPINE [Concomitant]
  14. FERRO SANOL COMP [Concomitant]
  15. FOSRENOL [Concomitant]
  16. ARANESP [Concomitant]
  17. HUMINSULIN BASAL [Concomitant]
     Indication: DIABETES MELLITUS
     Dates: start: 20080516
  18. HUMALOG [Concomitant]

REACTIONS (2)
  - HYPOGLYCAEMIA [None]
  - LOSS OF CONSCIOUSNESS [None]
